FAERS Safety Report 19441870 (Version 1)
Quarter: 2021Q2

REPORT INFORMATION
  Report Type: Spontaneous
  Country: BE (occurrence: BE)
  Receive Date: 20210621
  Receipt Date: 20210621
  Transmission Date: 20210717
  Serious: Yes (Other)
  Sender: FDA-Public Use
  Company Number: NVSC2021BE105346

PATIENT
  Sex: Female

DRUGS (4)
  1. KISQALI [Suspect]
     Active Substance: RIBOCICLIB
     Indication: BONE CANCER METASTATIC
     Dosage: 200 MG, QD (3 X200MG)
     Route: 065
     Dates: start: 20210223, end: 20210421
  2. KISQALI [Suspect]
     Active Substance: RIBOCICLIB
     Dosage: 200 MG, QD (2 X 200MG)
     Route: 065
     Dates: start: 20210423
  3. STEOVIT D3 [Concomitant]
     Active Substance: CALCIUM CARBONATE\CHOLECALCIFEROL
     Indication: PRODUCT USED FOR UNKNOWN INDICATION
     Dosage: 1000 MG (880/1000 MG)
     Route: 065
  4. FEMARA [Concomitant]
     Active Substance: LETROZOLE
     Indication: PRODUCT USED FOR UNKNOWN INDICATION
     Dosage: 2.5 MG
     Route: 065

REACTIONS (4)
  - Hepatic cytolysis [Recovering/Resolving]
  - Haematotoxicity [Recovering/Resolving]
  - Neutropenia [Unknown]
  - Hepatotoxicity [Unknown]
